FAERS Safety Report 13088612 (Version 2)
Quarter: 2017Q1

REPORT INFORMATION
  Report Type: Spontaneous
  Country: AU (occurrence: AU)
  Receive Date: 20170105
  Receipt Date: 20170208
  Transmission Date: 20170428
  Serious: Yes (Other)
  Sender: FDA-Public Use
  Company Number: AU-PFIZER INC-2016603340

PATIENT
  Age: 54 Year
  Sex: Female

DRUGS (8)
  1. LYRICA [Suspect]
     Active Substance: PREGABALIN
     Indication: NECK PAIN
     Dosage: 75 MG, 1X/DAY (AT NIGHT)
  2. BOTOX [Suspect]
     Active Substance: ONABOTULINUMTOXINA
     Indication: TORTICOLLIS
     Dosage: 100 IU, SINGLE (RIGHT POSTEROLATERAL CERVICAL MUSCLES (70 UNITS), LEFT STERNOMASTOID (10 UNITS)
     Route: 030
     Dates: start: 20120712
  3. LYRICA [Suspect]
     Active Substance: PREGABALIN
     Indication: DYSTONIA
  4. ATENOLOL. [Concomitant]
     Active Substance: ATENOLOL
     Dosage: UNK
  5. VOLTAREN [Suspect]
     Active Substance: DICLOFENAC SODIUM
     Indication: NECK PAIN
     Dosage: 150 MG, DAILY
  6. VOLTAREN [Suspect]
     Active Substance: DICLOFENAC SODIUM
     Indication: DYSKINESIA
  7. FLECAINIDE [Concomitant]
     Active Substance: FLECAINIDE
     Dosage: UNK
  8. LYRICA [Suspect]
     Active Substance: PREGABALIN
     Indication: TREMOR
     Dosage: 150 MG, 2X/DAY

REACTIONS (4)
  - Iron deficiency anaemia [Unknown]
  - Oesophageal discomfort [Not Recovered/Not Resolved]
  - Cardiac disorder [Unknown]
  - Atrial fibrillation [Not Recovered/Not Resolved]
